FAERS Safety Report 8868531 (Version 1)
Quarter: 2012Q4

REPORT INFORMATION
  Report Type: 
  Country: US (occurrence: US)
  Receive Date: 20121025
  Receipt Date: 20121025
  Transmission Date: 20130627
  Serious: No
  Sender: FDA-Public Use
  Company Number: US-AMGEN-USASP2012019899

PATIENT
  Age: 51 Year
  Sex: Female
  Weight: 71.66 kg

DRUGS (11)
  1. ENBREL [Suspect]
     Indication: PRODUCT USED FOR UNKNOWN INDICATION
     Dosage: 50 mg, qwk
     Route: 058
  2. PLAQUENIL                          /00072603/ [Concomitant]
     Dosage: 200 mg, UNK
  3. CELEBREX [Concomitant]
     Dosage: 200 mg, UNK
  4. SYNTHROID [Concomitant]
     Dosage: 137 mug, UNK
  5. CYMBALTA [Concomitant]
     Dosage: 60 mg, UNK
  6. ARAVA [Concomitant]
     Dosage: 10 mg, UNK
  7. CALCIUM W/VITAMIN D                /00188401/ [Concomitant]
  8. CENTRUM                            /00554501/ [Concomitant]
  9. TRAZODONE [Concomitant]
     Dosage: 100 mg, UNK
  10. LORTAB                             /00607101/ [Concomitant]
  11. ECHINACEA                          /01323501/ [Concomitant]
     Dosage: 125 mg, UNK

REACTIONS (1)
  - Sinusitis [Recovered/Resolved]
